FAERS Safety Report 4282214-7 (Version None)
Quarter: 2004Q1

REPORT INFORMATION
  Report Type: 
  Country: None (occurrence: None)
  Receive Date: 20040130
  Receipt Date: 20030513
  Transmission Date: 20041129
  Serious: Yes (Death)
  Sender: FDA-Public Use
  Company Number: NL-GLAXOSMITHKLINE-B0319766A

PATIENT
  Age: 22 Year
  Sex: Female

DRUGS (5)
  1. PAROXETINE HCL [Suspect]
     Dosage: 20MG PER DAY
     Route: 048
     Dates: start: 20021230, end: 20030503
  2. MICROGYNON 30 [Concomitant]
     Route: 048
     Dates: start: 20020902
  3. OMEPRAZOLE [Concomitant]
     Route: 065
  4. NEXIUM [Concomitant]
     Route: 065
  5. CORSODYL [Concomitant]
     Route: 065

REACTIONS (2)
  - COMPLETED SUICIDE [None]
  - OVERDOSE [None]
